FAERS Safety Report 13573944 (Version 1)
Quarter: 2017Q2

REPORT INFORMATION
  Report Type: Spontaneous
  Country: AU (occurrence: AU)
  Receive Date: 20170523
  Receipt Date: 20170523
  Transmission Date: 20170830
  Serious: Yes (Life-Threatening, Other)
  Sender: FDA-Public Use
  Company Number: AU-TEVA-769402ISR

PATIENT
  Age: 15 Year
  Sex: Male
  Weight: 70 kg

DRUGS (8)
  1. PROMETHAZINE [Suspect]
     Active Substance: PROMETHAZINE\PROMETHAZINE HYDROCHLORIDE
     Indication: DEPRESSION
     Dosage: 500 MG
  2. VENLAFAXINE [Suspect]
     Active Substance: VENLAFAXINE HYDROCHLORIDE
     Indication: DEPRESSION
     Dosage: 1.05 G
  3. FLUOXETINE [Suspect]
     Active Substance: FLUOXETINE HYDROCHLORIDE
     Indication: DEPRESSION
     Dosage: 560 MG
  4. DESVENLAFAXINE (BRAND UNSPECIFIED) [Suspect]
     Active Substance: DESVENLAFAXINE
     Indication: DEPRESSION
     Dosage: 5.6 G
  5. AMLODIPINE [Suspect]
     Active Substance: AMLODIPINE BESYLATE
     Indication: ESSENTIAL HYPERTENSION
     Dosage: 290 MG
  6. LITHIUM (BRAND UNSPECIFIED) [Suspect]
     Active Substance: LITHIUM
     Dosage: 500 MG
  7. QUETIAPINE (BRAND UNSPECIFIED) [Suspect]
     Active Substance: QUETIAPINE
     Indication: DEPRESSION
     Dosage: 13.5 G (IMMEDIATE AND EXTENDED RELEASE)
  8. RAMIPRIL (BRAND UNSPECIFIED) [Suspect]
     Active Substance: RAMIPRIL
     Indication: ESSENTIAL HYPERTENSION
     Dosage: 100 MG

REACTIONS (9)
  - Pupil fixed [Unknown]
  - Paralysis [Unknown]
  - Serotonin syndrome [Unknown]
  - Vasoplegia syndrome [Recovered/Resolved]
  - Overdose [Unknown]
  - Muscle rigidity [Unknown]
  - Hypoventilation [Unknown]
  - Hyperthermia [Unknown]
  - Pyrexia [Unknown]
